FAERS Safety Report 5521289-1 (Version None)
Quarter: 2007Q4

REPORT INFORMATION
  Report Type: 
  Country: None (occurrence: None)
  Receive Date: 20071119
  Receipt Date: 20071114
  Transmission Date: 20080405
  Serious: Yes (Other)
  Sender: FDA-Public Use
  Company Number: JP-BOEHRINGER INGELHEIM PHARMACEUTICALS, INC.-2007-BP-24449NB

PATIENT
  Sex: Male
  Weight: 61.6 kg

DRUGS (3)
  1. MICARDIS [Suspect]
     Indication: HYPERTENSION
     Route: 048
     Dates: start: 20060425
  2. CALBLOCK [Concomitant]
     Indication: PROPHYLAXIS
     Route: 048
     Dates: start: 20051111
  3. LIPIDIL [Concomitant]
     Indication: HYPERTENSION
     Route: 048
     Dates: start: 20050328

REACTIONS (1)
  - CEREBRAL INFARCTION [None]
